FAERS Safety Report 4389931-9 (Version None)
Quarter: 2004Q2

REPORT INFORMATION
  Report Type: 
  Country: None (occurrence: None)
  Receive Date: 20040630
  Receipt Date: 20040614
  Transmission Date: 20050107
  Serious: Yes (Hospitalization)
  Sender: FDA-Public Use
  Company Number: 230023M04SWE

PATIENT
  Age: 39 Year
  Sex: Male

DRUGS (5)
  1. REBIF [Suspect]
     Indication: MULTIPLE SCLEROSIS
     Dosage: 22 MCG, 3 IN 1 WEEKS, INTRAMUSCULAR
     Route: 030
     Dates: start: 19970601, end: 20030301
  2. GABAPENTIN [Concomitant]
  3. AMITRIPTYLINE HYDROCHLORIDE [Concomitant]
  4. CLINDAMYCIN HYDROCHLORIDE [Concomitant]
  5. CIPROFLOXACIN [Concomitant]

REACTIONS (4)
  - ABSCESS SOFT TISSUE [None]
  - INJECTION SITE NECROSIS [None]
  - INJECTION SITE ULCER [None]
  - MEDICATION ERROR [None]
